FAERS Safety Report 4459198-1 (Version None)
Quarter: 2004Q3

REPORT INFORMATION
  Report Type: 
  Country: None (occurrence: None)
  Receive Date: 20040924
  Receipt Date: 20040924
  Transmission Date: 20050211
  Serious: Yes (Other)
  Sender: FDA-Public Use
  Company Number: None

PATIENT
  Sex: Male
  Weight: 61.6892 kg

DRUGS (2)
  1. PHENERGAN [Suspect]
     Indication: NAUSEA
     Dosage: 25 MG Q 6HR IV
     Route: 042
     Dates: start: 20040826, end: 20040831
  2. HYDROCODONE BITARTRATE AND ACETAMINOPHEN [Concomitant]

REACTIONS (2)
  - CONFUSIONAL STATE [None]
  - DYSARTHRIA [None]
